FAERS Safety Report 13096236 (Version 1)
Quarter: 2017Q1

REPORT INFORMATION
  Report Type: Spontaneous
  Country: US (occurrence: US)
  Receive Date: 20170109
  Receipt Date: 20170109
  Transmission Date: 20170428
  Serious: No
  Sender: FDA-Public Use
  Company Number: US-JNJFOC-20161204290

PATIENT
  Age: 66 Year
  Sex: Male

DRUGS (2)
  1. IMBRUVICA [Suspect]
     Active Substance: IBRUTINIB
     Indication: CHRONIC LYMPHOCYTIC LEUKAEMIA
     Route: 065
     Dates: start: 201609
  2. ATIVAN [Concomitant]
     Active Substance: LORAZEPAM

REACTIONS (5)
  - Dyspepsia [Not Recovered/Not Resolved]
  - Arthralgia [Recovered/Resolved]
  - Dysgeusia [Not Recovered/Not Resolved]
  - Mouth ulceration [Recovered/Resolved]
  - Myalgia [Recovered/Resolved]

NARRATIVE: CASE EVENT DATE: 2016
